FAERS Safety Report 8272133-3 (Version None)
Quarter: 2012Q2

REPORT INFORMATION
  Report Type: 
  Country: None (occurrence: None)
  Receive Date: 20120410
  Receipt Date: 20120203
  Transmission Date: 20120825
  Serious: No
  Sender: FDA-Public Use
  Company Number: US-ASTRAZENECA-2012SE07672

PATIENT
  Age: 52 Year
  Sex: Female

DRUGS (6)
  1. CALCIUM 500 + D [Concomitant]
  2. LEVOTHYROXINE SODIUM [Concomitant]
  3. VANDETANIB [Suspect]
     Indication: THYROID CANCER
     Route: 048
  4. VANDETANIB [Suspect]
     Route: 048
  5. B COMPLEX ELX [Concomitant]
  6. MULTI-VITAMINS [Concomitant]

REACTIONS (1)
  - HEPATIC ENZYME INCREASED [None]
